FAERS Safety Report 10159849 (Version 3)
Quarter: 2014Q2

REPORT INFORMATION
  Report Type: Spontaneous
  Country: IT (occurrence: IT)
  Receive Date: 20140508
  Receipt Date: 20140617
  Transmission Date: 20141212
  Serious: Yes (Hospitalization)
  Sender: FDA-Public Use
  Company Number: IT-SA-2014SA055833

PATIENT
  Age: 46 Year
  Sex: Female

DRUGS (2)
  1. FERLIXIT [Suspect]
     Indication: IRON DEFICIENCY ANAEMIA
     Dosage: DOSE: 1 DOSAGE UNIT DOSE:1 UNIT(S)
     Route: 042
     Dates: start: 20140324, end: 20140324
  2. FERRO-GRAD [Concomitant]

REACTIONS (3)
  - Abdominal pain upper [Recovered/Resolved]
  - Ascites [Recovered/Resolved]
  - Oedema peripheral [Recovered/Resolved]
